FAERS Safety Report 13782247 (Version 2)
Quarter: 2017Q4

REPORT INFORMATION
  Report Type: Spontaneous
  Country: CZ (occurrence: CZ)
  Receive Date: 20170724
  Receipt Date: 20171005
  Transmission Date: 20180320
  Serious: Yes (Death)
  Sender: FDA-Public Use
  Company Number: CZ-BAYER-2017-140151

PATIENT
  Sex: Male
  Weight: 74 kg

DRUGS (9)
  1. FURON [FUROSEMIDE] [Concomitant]
     Dosage: 60 MG, QD
     Route: 048
     Dates: start: 20170410
  2. ADEMPAS [Suspect]
     Active Substance: RIOCIGUAT
     Indication: PULMONARY HYPERTENSION
     Dosage: 1 MG, TID
     Route: 048
     Dates: start: 20170306, end: 201703
  3. VEROSPIRON [Concomitant]
     Active Substance: SPIRONOLACTONE
     Dosage: 25 MG, QD
     Route: 048
     Dates: start: 20170410
  4. URSOSAN [Concomitant]
     Dosage: 500 MG, QD
     Route: 048
  5. FURON [FUROSEMIDE] [Concomitant]
     Dosage: 40 MG, QD
     Route: 048
     Dates: end: 20170410
  6. ADEMPAS [Suspect]
     Active Substance: RIOCIGUAT
     Indication: PULMONARY HYPERTENSION
     Dosage: 1.5 MG, TID
     Route: 048
     Dates: start: 201703, end: 20170410
  7. KALNORMIN [Concomitant]
     Active Substance: POTASSIUM CHLORIDE
     Dosage: 1 G, QD
     Route: 048
  8. HELICID [Concomitant]
     Active Substance: OMEPRAZOLE
     Dosage: 20 MG, QD
     Route: 048
  9. XARELTO [Concomitant]
     Active Substance: RIVAROXABAN
     Dosage: 20 MG, QD
     Route: 048

REACTIONS (1)
  - Blood pressure decreased [Fatal]
